FAERS Safety Report 9728513 (Version 1)
Quarter: 2013Q4

REPORT INFORMATION
  Report Type: Spontaneous
  Country: GB (occurrence: None)
  Receive Date: 20131202
  Receipt Date: 20131202
  Transmission Date: 20140711
  Serious: Yes (Hospitalization)
  Sender: FDA-Public Use
  Company Number: 20130680

PATIENT
  Age: 14 Year
  Sex: Male

DRUGS (2)
  1. OLANZAPINE [Suspect]
     Indication: BIPOLAR DISORDER
     Dosage: UNKNOWN; 10 MG DAILY
  2. SODIUM VALPROATE [Concomitant]

REACTIONS (2)
  - Mental impairment [None]
  - Product substitution issue [None]
